FAERS Safety Report 9696006 (Version 1)
Quarter: 2013Q4

REPORT INFORMATION
  Report Type: Spontaneous
  Country: CA (occurrence: DE)
  Receive Date: 20131119
  Receipt Date: 20131119
  Transmission Date: 20140711
  Serious: Yes (Hospitalization, Other)
  Sender: FDA-Public Use
  Company Number: DE-PFIZER INC-2013329066

PATIENT
  Age: 47 Year
  Sex: Male

DRUGS (2)
  1. PREGABALIN [Suspect]
     Dosage: UNK
     Route: 048
  2. PREGABALIN [Suspect]
     Dosage: 7500 MG PER DAY
     Route: 048

REACTIONS (9)
  - Drug abuse [Not Recovered/Not Resolved]
  - Drug dependence [Not Recovered/Not Resolved]
  - Drug tolerance [Unknown]
  - Withdrawal syndrome [Unknown]
  - Hyperhidrosis [Unknown]
  - Restlessness [Unknown]
  - Hypertension [Unknown]
  - Tremor [Unknown]
  - Euphoric mood [Unknown]
